FAERS Safety Report 6077923-3 (Version None)
Quarter: 2009Q1

REPORT INFORMATION
  Report Type: 
  Country: None (occurrence: None)
  Receive Date: 20090213
  Receipt Date: 20090203
  Transmission Date: 20090719
  Serious: Yes (Other)
  Sender: FDA-Public Use
  Company Number: SE-ROCHE-612180

PATIENT
  Age: 36 Year
  Sex: Female

DRUGS (1)
  1. ROACCUTAN [Suspect]
     Indication: ACNE
     Route: 065

REACTIONS (3)
  - ANAEMIA [None]
  - GLOMERULONEPHRITIS CHRONIC [None]
  - RENAL FAILURE CHRONIC [None]
